FAERS Safety Report 18214767 (Version 3)
Quarter: 2025Q3

REPORT INFORMATION
  Report Type: Spontaneous
  Country: US (occurrence: US)
  Receive Date: 20200831
  Receipt Date: 20250813
  Transmission Date: 20251021
  Serious: Yes (Death, Other)
  Sender: PURDUE
  Company Number: US-PURDUE-USA-2020-0163849

PATIENT
  Age: 41 Year
  Sex: Female
  Weight: 77.098 kg

DRUGS (12)
  1. OXYCONTIN [Suspect]
     Active Substance: OXYCODONE HYDROCHLORIDE
     Indication: Product used for unknown indication
     Dosage: 30 MG, QID
     Route: 048
  2. OXYCODONE HYDROCHLORIDE [Suspect]
     Active Substance: OXYCODONE HYDROCHLORIDE
     Indication: Product used for unknown indication
     Route: 065
  3. MORPHINE SULFATE [Suspect]
     Active Substance: MORPHINE SULFATE
     Indication: Product used for unknown indication
     Route: 065
  4. MS CONTIN [Suspect]
     Active Substance: MORPHINE SULFATE
     Indication: Product used for unknown indication
     Dosage: 30 MG, QID
     Route: 048
  5. OXYCODONE HYDROCHLORIDE [Suspect]
     Active Substance: OXYCODONE HYDROCHLORIDE
     Indication: Product used for unknown indication
     Dosage: 30 MG, QID
     Route: 048
  6. OXYCODONE HYDROCHLORIDE [Suspect]
     Active Substance: OXYCODONE HYDROCHLORIDE
     Indication: Product used for unknown indication
     Dosage: 30 MG, QID
     Route: 048
  7. ALPRAZOLAM [Suspect]
     Active Substance: ALPRAZOLAM
     Indication: Product used for unknown indication
     Route: 065
  8. FLUOXETINE [Concomitant]
     Active Substance: FLUOXETINE HYDROCHLORIDE
     Indication: Product used for unknown indication
     Route: 065
  9. AMITRIPTYLINE HYDROCHLORIDE [Concomitant]
     Active Substance: AMITRIPTYLINE HYDROCHLORIDE
     Indication: Product used for unknown indication
     Route: 065
  10. NORTRIP [Concomitant]
     Indication: Product used for unknown indication
     Route: 065
  11. OXYMORPHONE [Concomitant]
     Active Substance: OXYMORPHONE
     Indication: Product used for unknown indication
     Route: 065
  12. TOPIRAMATE [Concomitant]
     Active Substance: TOPIRAMATE
     Indication: Product used for unknown indication
     Route: 065

REACTIONS (7)
  - Hypoxic-ischaemic encephalopathy [Fatal]
  - Hepatic cirrhosis [Fatal]
  - Pneumonia [Fatal]
  - Toxicity to various agents [Fatal]
  - Dependence [Unknown]
  - Loss of consciousness [Unknown]
  - Gastrointestinal disorder [Unknown]

NARRATIVE: CASE EVENT DATE: 20181001
